FAERS Safety Report 7388811-4 (Version None)
Quarter: 2011Q2

REPORT INFORMATION
  Report Type: 
  Country: None (occurrence: None)
  Receive Date: 20110401
  Receipt Date: 20110324
  Transmission Date: 20111010
  Serious: Yes (Death)
  Sender: FDA-Public Use
  Company Number: US-JNJFOC-20110311061

PATIENT
  Sex: Male

DRUGS (4)
  1. IBUPROFEN [Suspect]
  2. PARACETAMOL [Suspect]
     Indication: TOOTHACHE
  3. IBUPROFEN [Suspect]
     Indication: TOOTHACHE
  4. PARACETAMOL [Suspect]

REACTIONS (2)
  - INCORRECT DOSE ADMINISTERED [None]
  - LIVER INJURY [None]
